FAERS Safety Report 9321778 (Version 1)
Quarter: 2013Q2

REPORT INFORMATION
  Report Type: Report from Study
  Country: ZA (occurrence: ZA)
  Receive Date: 20130531
  Receipt Date: 20130531
  Transmission Date: 20140414
  Serious: Yes (Other)
  Sender: FDA-Public Use
  Company Number: ZA-ABBOTT-13P-143-1093272-00

PATIENT
  Age: 33 Year
  Sex: Female

DRUGS (7)
  1. ALUVIA [Suspect]
     Indication: HIV INFECTION
     Route: 048
     Dates: start: 20130308
  2. LAMIVUDINE + ZIDOVUDINE [Concomitant]
     Indication: HIV INFECTION
     Route: 048
     Dates: start: 20130308
  3. ISONIAZID [Concomitant]
     Indication: PROPHYLAXIS
     Route: 048
     Dates: start: 20130408, end: 20130504
  4. PREGAMAL [Concomitant]
     Indication: PRODUCT USED FOR UNKNOWN INDICATION
     Route: 048
     Dates: start: 20130222
  5. CALCIUM [Concomitant]
     Indication: PRODUCT USED FOR UNKNOWN INDICATION
     Route: 048
     Dates: start: 20130222
  6. AMOXICILLIN [Concomitant]
     Indication: URINARY TRACT INFECTION
     Route: 048
     Dates: start: 20130222, end: 20130301
  7. PYRIDOXINE [Concomitant]
     Indication: PROPHYLAXIS
     Dates: end: 20130504

REACTIONS (1)
  - Foetal death [Unknown]
